FAERS Safety Report 11821048 (Version 2)
Quarter: 2016Q1

REPORT INFORMATION
  Report Type: Spontaneous
  Country: US (occurrence: US)
  Receive Date: 20151210
  Receipt Date: 20160202
  Transmission Date: 20160525
  Serious: No
  Sender: FDA-Public Use
  Company Number: US-JNJFOC-20150620448

PATIENT
  Age: 75 Year
  Sex: Male

DRUGS (6)
  1. IMBRUVICA [Suspect]
     Active Substance: IBRUTINIB
     Indication: CHRONIC LYMPHOCYTIC LEUKAEMIA
     Route: 048
     Dates: start: 20140510
  2. METOPROLOL. [Concomitant]
     Active Substance: METOPROLOL
  3. TOPROL XL [Concomitant]
     Active Substance: METOPROLOL SUCCINATE
  4. COLESTIPOL [Concomitant]
     Active Substance: COLESTIPOL
  5. ALLOPURINOL. [Concomitant]
     Active Substance: ALLOPURINOL
  6. SYNTHROID [Concomitant]
     Active Substance: LEVOTHYROXINE SODIUM

REACTIONS (3)
  - Neuropathy peripheral [Unknown]
  - Atrial fibrillation [Unknown]
  - Incorrect dose administered [Not Recovered/Not Resolved]

NARRATIVE: CASE EVENT DATE: 20140508
